FAERS Safety Report 6126568-5 (Version None)
Quarter: 2009Q1

REPORT INFORMATION
  Report Type: 
  Country: None (occurrence: None)
  Receive Date: 20090320
  Receipt Date: 20090317
  Transmission Date: 20090719
  Serious: Yes (Other)
  Sender: FDA-Public Use
  Company Number: GR-PFIZER INC-2008081007

PATIENT

DRUGS (2)
  1. CELEBREX [Suspect]
  2. EFFEXOR [Suspect]

REACTIONS (2)
  - HALLUCINATION, VISUAL [None]
  - MEDICATION ERROR [None]
